FAERS Safety Report 18964937 (Version 1)
Quarter: 2021Q1

REPORT INFORMATION
  Report Type: Spontaneous
  Country: JP (occurrence: JP)
  Receive Date: 20210303
  Receipt Date: 20210303
  Transmission Date: 20210420
  Serious: Yes (Other)
  Sender: FDA-Public Use
  Company Number: JP-DSJP-DSJ-2021-105765

PATIENT
  Age: 54 Year
  Sex: Male
  Weight: 112 kg

DRUGS (5)
  1. EFIENT [Suspect]
     Active Substance: PRASUGREL HYDROCHLORIDE
     Dosage: 3.75 MG, QD
     Route: 065
  2. METANDIENONE [Suspect]
     Active Substance: METHANDROSTENOLONE
     Dosage: 40 MG, QD
  3. EFIENT [Suspect]
     Active Substance: PRASUGREL HYDROCHLORIDE
     Indication: MYOCARDIAL INFARCTION
     Dosage: 20 MG, QD
     Route: 065
  4. OXANDROLONE. [Suspect]
     Active Substance: OXANDROLONE
     Dosage: 20 MG, QD
  5. ASPIRIN                            /00002701/ [Concomitant]
     Active Substance: ASPIRIN
     Dosage: 100MG/DAY
     Route: 065

REACTIONS (1)
  - Vascular stent thrombosis [Unknown]
